FAERS Safety Report 6111284-6 (Version None)
Quarter: 2009Q1

REPORT INFORMATION
  Report Type: 
  Country: None (occurrence: None)
  Receive Date: 20090310
  Receipt Date: 20090310
  Transmission Date: 20090719
  Serious: Yes (Other)
  Sender: FDA-Public Use
  Company Number: None

PATIENT
  Age: 35 Year
  Sex: Female
  Weight: 53 kg

DRUGS (1)
  1. EMLA [Suspect]
     Indication: LOCAL ANAESTHESIA
     Dosage: OVER ONE HOUR
     Dates: start: 20090301, end: 20090301

REACTIONS (2)
  - DISCOMFORT [None]
  - HYPOAESTHESIA FACIAL [None]
